FAERS Safety Report 6253245-2 (Version None)
Quarter: 2009Q3

REPORT INFORMATION
  Report Type: 
  Country: None (occurrence: None)
  Receive Date: 20090701
  Receipt Date: 20090626
  Transmission Date: 20100115
  Serious: Yes (Hospitalization)
  Sender: FDA-Public Use
  Company Number: FR-BRISTOL-MYERS SQUIBB COMPANY-14683163

PATIENT
  Age: 35 Year
  Sex: Male

DRUGS (1)
  1. KENACORT [Suspect]
     Indication: PROPHYLAXIS
     Route: 030
     Dates: start: 20090213

REACTIONS (4)
  - CONFUSIONAL STATE [None]
  - EYE IRRITATION [None]
  - GASTROINTESTINAL DISORDER [None]
  - TREMOR [None]
